FAERS Safety Report 21846069 (Version 1)
Quarter: 2023Q1

REPORT INFORMATION
  Report Type: Report from Study
  Country: BR (occurrence: BR)
  Receive Date: 20230111
  Receipt Date: 20230111
  Transmission Date: 20230418
  Serious: Yes (Other)
  Sender: FDA-Public Use
  Company Number: BR-JNJFOC-20221225445

PATIENT
  Age: 16 Year
  Sex: Male
  Weight: 50 kg

DRUGS (3)
  1. INFLIXIMAB [Suspect]
     Active Substance: INFLIXIMAB
     Indication: Crohn^s disease
     Dosage: 250MG INFUSION OF INFLIXIMAB IN 250ML OF SALINE 0.9% IN CONTINUOUS INFUSION PUMP
     Route: 041
     Dates: start: 20221209, end: 20221209
  2. REMICADE [Suspect]
     Active Substance: INFLIXIMAB
     Indication: Crohn^s disease
     Route: 041
     Dates: start: 20160809
  3. DIPHENHYDRAMINE [Suspect]
     Active Substance: DIPHENHYDRAMINE
     Indication: Infusion related reaction
     Dosage: ADMINISTERED IN 250ML OF SALINE 0.9%.

REACTIONS (5)
  - Tachycardia [Recovered/Resolved]
  - Infusion related reaction [Recovered/Resolved]
  - Vomiting [Recovered/Resolved]
  - Eyelid oedema [Recovered/Resolved]
  - Somnolence [Unknown]

NARRATIVE: CASE EVENT DATE: 20221209
